FAERS Safety Report 8921042 (Version 2)
Quarter: 2012Q4

REPORT INFORMATION
  Report Type: 
  Country: FR (occurrence: FR)
  Receive Date: 20121121
  Receipt Date: 20121207
  Transmission Date: 20130627
  Serious: Yes (Death, Hospitalization)
  Sender: FDA-Public Use
  Company Number: FR-B.I. PHARMACEUTICALS,INC./RIDGEFIELD-2012-FF-01610FF

PATIENT
  Age: 89 Year
  Sex: Male
  Weight: 70 kg

DRUGS (9)
  1. PRADAXA [Suspect]
     Indication: ATRIAL FIBRILLATION
     Dosage: 220 mg
     Route: 048
     Dates: start: 20121029, end: 20121110
  2. ALDACTONE [Suspect]
     Indication: PULMONARY OEDEMA
     Dosage: 25 mg
     Dates: end: 20121110
  3. LASILIX [Suspect]
     Indication: PULMONARY OEDEMA
     Dosage: 20 mg
  4. LASILIX [Suspect]
     Dosage: 60 mg
     Dates: end: 20121110
  5. ESIDREX [Suspect]
     Indication: PULMONARY OEDEMA
  6. ESIDREX [Suspect]
     Dosage: 25 mg
     Dates: start: 201211, end: 20121110
  7. KARDEGIC [Concomitant]
  8. BISOPROLOL [Concomitant]
     Indication: HYPERTENSION
  9. APROVEL [Concomitant]
     Indication: HYPERTENSION
     Dosage: 300 mg

REACTIONS (8)
  - Gastrointestinal haemorrhage [Fatal]
  - Haematemesis [Fatal]
  - Melaena [Fatal]
  - Abdominal pain upper [Unknown]
  - Renal failure [Unknown]
  - Hypotension [Unknown]
  - Aphagia [Unknown]
  - Fluid intake reduced [Unknown]
